FAERS Safety Report 8845102 (Version 1)
Quarter: 2012Q4

REPORT INFORMATION
  Report Type: 
  Country: US (occurrence: US)
  Receive Date: 20121017
  Receipt Date: 20121017
  Transmission Date: 20130627
  Serious: Yes (Other)
  Sender: FDA-Public Use
  Company Number: US-BRISTOL-MYERS SQUIBB COMPANY-17026659

PATIENT
  Age: 55 Year
  Sex: Female

DRUGS (2)
  1. ORENCIA FOR INJ [Suspect]
     Indication: RHEUMATOID ARTHRITIS
     Dosage: Last injection was on 07OCT2012 1DF: 2 times 200mg/ml
     Route: 058
  2. ARAVA [Suspect]

REACTIONS (2)
  - Arthropathy [Unknown]
  - Pneumonia [Unknown]
